FAERS Safety Report 7664539 (Version 7)
Quarter: 2013Q2

REPORT INFORMATION
  Report Type: Spontaneous
  Country: US (occurrence: US)
  Receive Date: 20101111
  Receipt Date: 20130513
  Transmission Date: 20140414
  Serious: Yes (Hospitalization, Other)
  Sender: FDA-Public Use
  Company Number: US-ROCHE-718920

PATIENT
  Age: 25 Year
  Sex: Female
  Weight: 63.5 kg

DRUGS (7)
  1. ACCUTANE [Suspect]
     Indication: ACNE
     Route: 048
     Dates: start: 199410, end: 199503
  2. ACCUTANE [Suspect]
     Route: 048
     Dates: start: 199703, end: 199708
  3. ACCUTANE [Suspect]
     Route: 048
     Dates: start: 199910, end: 200003
  4. ORTHO TRI-CYCLEN [Concomitant]
     Indication: CONTRACEPTION
  5. ZANTAC [Concomitant]
     Route: 065
  6. CARAFATE [Concomitant]
     Route: 065
  7. TORADOL [Concomitant]
     Route: 065

REACTIONS (9)
  - Small intestinal obstruction [Unknown]
  - Hernia [Unknown]
  - Gastritis [Unknown]
  - Peptic ulcer [Unknown]
  - Pneumonia [Recovered/Resolved]
  - Crohn^s disease [Unknown]
  - Gastrointestinal injury [Unknown]
  - Depression [Unknown]
  - Hepatic enzyme increased [Unknown]
